FAERS Safety Report 6362244-1 (Version None)
Quarter: 2009Q3

REPORT INFORMATION
  Report Type: 
  Country: None (occurrence: None)
  Receive Date: 20090918
  Receipt Date: 20090625
  Transmission Date: 20100115
  Serious: No
  Sender: FDA-Public Use
  Company Number: US-ABBOTT-09P-163-0580517-00

PATIENT
  Sex: Male
  Weight: 79.45 kg

DRUGS (5)
  1. HUMIRA [Suspect]
     Indication: PSORIASIS
     Route: 058
     Dates: start: 20090525, end: 20090525
  2. RAPTIVA [Suspect]
     Indication: PSORIASIS
     Route: 058
     Dates: start: 20070401, end: 20090501
  3. INDERAL [Concomitant]
     Indication: DRUG USE FOR UNKNOWN INDICATION
  4. PROTONIX [Concomitant]
     Indication: DRUG USE FOR UNKNOWN INDICATION
  5. IMITREX [Concomitant]
     Indication: DRUG USE FOR UNKNOWN INDICATION

REACTIONS (2)
  - ANTINUCLEAR ANTIBODY POSITIVE [None]
  - RASH [None]
